FAERS Safety Report 6788941-1 (Version None)
Quarter: 2010Q2

REPORT INFORMATION
  Report Type: 
  Country: None (occurrence: None)
  Receive Date: 20100623
  Receipt Date: 20080605
  Transmission Date: 20101027
  Serious: No
  Sender: FDA-Public Use
  Company Number: US-PFIZER INC-2008048579

PATIENT
  Sex: Female
  Weight: 100 kg

DRUGS (4)
  1. XALATAN [Suspect]
     Indication: GLAUCOMA
     Dosage: 1 GTT TDD:2 GTTS
     Route: 047
     Dates: start: 20080401
  2. DILTIAZEM [Concomitant]
     Indication: CARDIAC DISORDER
  3. SYSTANE [Concomitant]
     Indication: DRY EYE
     Route: 047
  4. LOTEMAX [Concomitant]
     Indication: EYE IRRITATION
     Route: 047

REACTIONS (1)
  - VISUAL IMPAIRMENT [None]
